FAERS Safety Report 4702503-9 (Version None)
Quarter: 2005Q2

REPORT INFORMATION
  Report Type: 
  Country: None (occurrence: None)
  Receive Date: 20050629
  Receipt Date: 20050620
  Transmission Date: 20051028
  Serious: Yes (Death, Hospitalization, Other)
  Sender: FDA-Public Use
  Company Number: JP-JNJFOC-20041102364

PATIENT
  Sex: Female

DRUGS (11)
  1. REMICADE [Suspect]
     Dosage: THIRD DOSE  3 MG/KG
     Route: 042
  2. REMICADE [Suspect]
     Dosage: SECOND DOSE  3 MG/KG
     Route: 042
  3. REMICADE [Suspect]
     Indication: RHEUMATOID ARTHRITIS
     Dosage: DOSE 3 MG/KG
     Route: 042
  4. PREDONINE [Concomitant]
     Route: 049
  5. PREDONINE [Concomitant]
     Indication: RHEUMATOID ARTHRITIS
     Route: 049
  6. PREDONINE [Concomitant]
     Route: 042
  7. METHOTREXATE [Concomitant]
     Indication: RHEUMATOID ARTHRITIS
  8. NEORAL [Concomitant]
     Indication: RHEUMATOID ARTHRITIS
     Route: 049
  9. SANDIMMUNE [Concomitant]
     Indication: RHEUMATOID ARTHRITIS
     Route: 042
  10. CLINAX [Concomitant]
     Route: 049
  11. CLINAX [Concomitant]
     Indication: RHEUMATOID ARTHRITIS
     Route: 049

REACTIONS (9)
  - ASTHENIA [None]
  - CYTOMEGALOVIRUS ENTERITIS [None]
  - DISSEMINATED INTRAVASCULAR COAGULATION [None]
  - GASTROINTESTINAL AMYLOIDOSIS [None]
  - GASTROINTESTINAL HAEMORRHAGE [None]
  - ILEUS [None]
  - PYREXIA [None]
  - SEPTIC SHOCK [None]
  - THERAPEUTIC PRODUCT INEFFECTIVE [None]
